FAERS Safety Report 19447350 (Version 2)
Quarter: 2022Q2

REPORT INFORMATION
  Report Type: Report from Study
  Country: CA (occurrence: CA)
  Receive Date: 20210622
  Receipt Date: 20220617
  Transmission Date: 20220721
  Serious: Yes (Other)
  Sender: FDA-Public Use
  Company Number: CA-ABBVIE-20K-028-3658368-00

PATIENT
  Sex: Female

DRUGS (1)
  1. HUMIRA [Suspect]
     Active Substance: ADALIMUMAB
     Indication: Crohn^s disease
     Route: 058
     Dates: start: 20140114

REACTIONS (7)
  - Fistula [Recovered/Resolved]
  - Anal fistula [Not Recovered/Not Resolved]
  - Anal fissure [Unknown]
  - Stomatitis [Recovered/Resolved]
  - Acne [Unknown]
  - Abdominal distension [Not Recovered/Not Resolved]
  - Abdominal pain [Unknown]
